FAERS Safety Report 6404085-2 (Version None)
Quarter: 2009Q4

REPORT INFORMATION
  Report Type: 
  Country: None (occurrence: None)
  Receive Date: 20091016
  Receipt Date: 20091006
  Transmission Date: 20100525
  Serious: Yes (Death)
  Sender: FDA-Public Use
  Company Number: SK-PFIZER INC-2009259151

PATIENT
  Age: 68 Year

DRUGS (17)
  1. BLINDED *NO SUBJECT DRUG [Suspect]
     Indication: CARDIAC FAILURE
     Dosage: UNK MG, 1X/DAY
     Dates: start: 20071207, end: 20080109
  2. BLINDED *PLACEBO [Suspect]
     Indication: CARDIAC FAILURE
     Dosage: UNK MG, 1X/DAY
     Dates: start: 20071207, end: 20080109
  3. BLINDED EPLERENONE [Suspect]
     Indication: CARDIAC FAILURE
     Dosage: UNK MG, 1X/DAY
     Dates: start: 20071207, end: 20080109
  4. BLINDED *NO SUBJECT DRUG [Suspect]
     Dosage: 50 MG, 1X/DAY
     Dates: start: 20080110, end: 20090808
  5. BLINDED *PLACEBO [Suspect]
     Dosage: 50 MG, 1X/DAY
     Dates: start: 20080110, end: 20090808
  6. BLINDED EPLERENONE [Suspect]
     Dosage: 50 MG, 1X/DAY
     Dates: start: 20080110, end: 20090808
  7. FUROSEMIDE [Concomitant]
     Dosage: 250 MG, UNK
     Route: 048
     Dates: start: 20090516
  8. FUROSEMIDE [Concomitant]
     Dosage: 125 MG, UNK
     Route: 048
     Dates: start: 20090420, end: 20090515
  9. FUROSEMIDE [Concomitant]
     Dosage: 40 MG, UNK
     Route: 048
     Dates: start: 20071115, end: 20090419
  10. RILMENIDINE [Concomitant]
     Dosage: UNK
     Route: 048
     Dates: start: 20090420
  11. METFORMIN HYDROCHLORIDE [Concomitant]
     Dosage: UNK
     Route: 048
     Dates: start: 20090615
  12. TRIMETAZIDINE HYDROCHLORIDE [Concomitant]
     Dosage: UNK
     Route: 048
     Dates: start: 20051125
  13. ANOPYRIN [Concomitant]
     Dosage: UNK
     Route: 048
     Dates: start: 20060119
  14. FENOFIBRATE [Concomitant]
     Dosage: UNK
     Route: 048
     Dates: start: 20050615
  15. NITRENDIPINE [Concomitant]
     Dosage: UNK
     Route: 048
     Dates: start: 20060420
  16. CARVEDILOL [Concomitant]
     Dosage: UNK
     Route: 048
     Dates: start: 20070919
  17. LOSARTAN [Concomitant]
     Dosage: UNK
     Route: 048
     Dates: start: 20090420, end: 20090502

REACTIONS (2)
  - CARDIAC FAILURE [None]
  - CONDITION AGGRAVATED [None]
